FAERS Safety Report 18538642 (Version 3)
Quarter: 2020Q4

REPORT INFORMATION
  Report Type: Report from Study
  Country: US (occurrence: US)
  Receive Date: 20201124
  Receipt Date: 20201223
  Transmission Date: 20210114
  Serious: Yes (Other)
  Sender: FDA-Public Use
  Company Number: NVSC2020US310131

PATIENT
  Sex: Male

DRUGS (1)
  1. GILENYA [Suspect]
     Active Substance: FINGOLIMOD HYDROCHLORIDE
     Indication: RELAPSING-REMITTING MULTIPLE SCLEROSIS
     Dosage: 0.5 MG, QD
     Route: 048
     Dates: start: 20101030, end: 20201007

REACTIONS (4)
  - Macular oedema [Recovered/Resolved]
  - Relapsing-remitting multiple sclerosis [Unknown]
  - Visual impairment [Recovered/Resolved]
  - Squamous cell carcinoma [Recovered/Resolved]
